FAERS Safety Report 5449388-3 (Version None)
Quarter: 2007Q3

REPORT INFORMATION
  Report Type: 
  Country: None (occurrence: None)
  Receive Date: 20070911
  Receipt Date: 20070830
  Transmission Date: 20080115
  Serious: Yes (Other)
  Sender: FDA-Public Use
  Company Number: US-PFIZER INC-2007072754

PATIENT
  Sex: Female
  Weight: 54.545 kg

DRUGS (4)
  1. LYRICA [Suspect]
     Indication: PERONEAL NERVE PALSY
  2. ATIVAN [Concomitant]
  3. CELEBREX [Concomitant]
  4. NEXIUM [Concomitant]

REACTIONS (8)
  - ALOPECIA [None]
  - ANOREXIA [None]
  - HAIR TEXTURE ABNORMAL [None]
  - PAIN [None]
  - PARAESTHESIA [None]
  - PRURITUS [None]
  - SWELLING [None]
  - WEIGHT DECREASED [None]
